FAERS Safety Report 5412395-0 (Version None)
Quarter: 2007Q3

REPORT INFORMATION
  Report Type: 
  Country: None (occurrence: None)
  Receive Date: 20070713
  Receipt Date: 20061031
  Transmission Date: 20080115
  Serious: Yes (Other)
  Sender: FDA-Public Use
  Company Number: US-JNJFOC-20060905822

PATIENT
  Age: 27 Year
  Sex: Female
  Weight: 123.1516 kg

DRUGS (2)
  1. ORTHO EVRA [Suspect]
     Indication: DRUG USE FOR UNKNOWN INDICATION
     Dosage: TRANSDERMAL
     Route: 062
     Dates: start: 20040501, end: 20040721
  2. L-THYROXINE (LEVOTHYROXINE SODIUM) [Concomitant]

REACTIONS (1)
  - DEEP VEIN THROMBOSIS [None]
